FAERS Safety Report 16271032 (Version 1)
Quarter: 2019Q2

REPORT INFORMATION
  Report Type: Spontaneous
  Country: BR (occurrence: BR)
  Receive Date: 20190503
  Receipt Date: 20190503
  Transmission Date: 20190711
  Serious: Yes (Other)
  Sender: FDA-Public Use
  Company Number: BR-AMGEN-BRASP2019066907

PATIENT
  Sex: Female

DRUGS (2)
  1. XGEVA [Suspect]
     Active Substance: DENOSUMAB
     Indication: PRODUCT USED FOR UNKNOWN INDICATION
     Dosage: UNK UNK, QMO
     Route: 065
  2. XGEVA [Suspect]
     Active Substance: DENOSUMAB
     Dosage: UNK UNK, Q3MO
     Route: 065

REACTIONS (2)
  - Off label use [Unknown]
  - Metastasis [Unknown]
